FAERS Safety Report 10154137 (Version 1)
Quarter: 2014Q2

REPORT INFORMATION
  Report Type: Spontaneous
  Country: CH (occurrence: None)
  Receive Date: 20140502
  Receipt Date: 20140502
  Transmission Date: 20141212
  Serious: Yes (Other)
  Sender: FDA-Public Use
  Company Number: 20140230

PATIENT
  Age: 5 Year
  Sex: Male

DRUGS (1)
  1. VENOFER [Suspect]
     Indication: ANAEMIA
     Dosage: DOSE UNKNOWN UNKNOWN

REACTIONS (4)
  - Erythema [None]
  - Hyperhidrosis [None]
  - Tachycardia [None]
  - Urticaria [None]
